FAERS Safety Report 9786367 (Version 1)
Quarter: 2013Q4

REPORT INFORMATION
  Report Type: Spontaneous
  Country: GB (occurrence: None)
  Receive Date: 20131224
  Receipt Date: 20131224
  Transmission Date: 20140711
  Serious: Yes (Life-Threatening)
  Sender: FDA-Public Use
  Company Number: AUR-APL-2013-10682

PATIENT
  Age: 38 Year
  Sex: Female
  Weight: 75 kg

DRUGS (4)
  1. FLUOXETINE (FLUOXETINE) [Suspect]
     Indication: DEPRESSION
     Route: 048
     Dates: start: 20131111, end: 20131111
  2. CANESTEN (CLOTRIMAZOLE) [Concomitant]
  3. CERAZETTE (CEFALORIDINE) [Concomitant]
  4. ERYTHROMYCIN (ERYTHROMYCIN) [Concomitant]

REACTIONS (1)
  - Anaphylactic reaction [None]
